FAERS Safety Report 6543517-6 (Version None)
Quarter: 2010Q1

REPORT INFORMATION
  Report Type: 
  Country: None (occurrence: None)
  Receive Date: 20100120
  Receipt Date: 20100115
  Transmission Date: 20100710
  Serious: Yes (Life-Threatening, Hospitalization)
  Sender: FDA-Public Use
  Company Number: B0626115A

PATIENT
  Age: 75 Year
  Sex: Male

DRUGS (4)
  1. AMOXICILLIN AND CLAVULANATE POTASSIUM [Suspect]
     Route: 048
     Dates: start: 20050713, end: 20050718
  2. SENNA [Concomitant]
     Indication: CONSTIPATION
     Dosage: 15MG PER DAY
     Route: 048
     Dates: start: 20050111
  3. LANSOPRAZOLE [Concomitant]
     Dosage: 15MG PER DAY
     Route: 048
     Dates: start: 20050111
  4. METOPROLOL [Concomitant]
     Indication: HYPERTENSION
     Dosage: 100MG PER DAY
     Route: 048
     Dates: start: 20050111

REACTIONS (3)
  - HEPATITIS [None]
  - JAUNDICE [None]
  - PRURITUS [None]
